FAERS Safety Report 22320803 (Version 1)
Quarter: 2023Q2

REPORT INFORMATION
  Report Type: Spontaneous
  Country: GB (occurrence: GB)
  Receive Date: 20230515
  Receipt Date: 20230515
  Transmission Date: 20230721
  Serious: Yes (Other)
  Sender: FDA-Public Use
  Company Number: None

PATIENT
  Age: 64 Year
  Sex: Female
  Weight: 101 kg

DRUGS (3)
  1. PRAVASTATIN [Suspect]
     Active Substance: PRAVASTATIN
     Indication: Hypertension
     Dosage: 10 MILLIGRAM
     Route: 048
     Dates: start: 20221220, end: 20230222
  2. BETNESOL N [Concomitant]
     Dosage: 2 GTT DROPS, TID (BOTH EARS, START DATE: 05-MAY-2023)
     Route: 065
  3. ESTRADIOL [Concomitant]
     Active Substance: ESTRADIOL
     Dosage: 37.5 MICROGRAM, QD (37.5MCG/24 HOURS, START DATE: 05-APR-2023)
     Route: 065

REACTIONS (2)
  - Hallucination [Recovered/Resolved]
  - Anxiety [Not Recovered/Not Resolved]
